FAERS Safety Report 21096036 (Version 1)
Quarter: 2022Q3

REPORT INFORMATION
  Report Type: Report from Study
  Country: CA (occurrence: CA)
  Receive Date: 20220718
  Receipt Date: 20220718
  Transmission Date: 20221026
  Serious: Yes (Other)
  Sender: FDA-Public Use
  Company Number: CA-GLAXOSMITHKLINE-CA2022GSK086012

PATIENT

DRUGS (5)
  1. BUPROPION HYDROCHLORIDE [Suspect]
     Active Substance: BUPROPION HYDROCHLORIDE
     Indication: Depression
     Dosage: 300 MG, QD
     Route: 048
     Dates: end: 20220525
  2. CONTRAVE [Suspect]
     Active Substance: BUPROPION HYDROCHLORIDE\NALTREXONE HYDROCHLORIDE
     Indication: Weight control
     Dosage: UNK (90/8 MG)
     Route: 048
     Dates: start: 20220326
  3. CONTRAVE [Suspect]
     Active Substance: BUPROPION HYDROCHLORIDE\NALTREXONE HYDROCHLORIDE
     Dosage: 2 DF, 1D (90/8 MG, 2 TAB Q AM, 2 TAB Q PM)
     Route: 048
     Dates: start: 20220416
  4. CIPRALEX [Concomitant]
     Active Substance: ESCITALOPRAM OXALATE
     Indication: Depression
     Dosage: 1 DF, 1D (REDUCED BY 50 PERCENT)
     Route: 048
  5. LAMOTRIGINE [Concomitant]
     Active Substance: LAMOTRIGINE
     Indication: Depression
     Dosage: 1 DF, 1D
     Route: 048

REACTIONS (5)
  - Posture abnormal [Not Recovered/Not Resolved]
  - Food poisoning [Unknown]
  - Taste disorder [Not Recovered/Not Resolved]
  - Product dose omission issue [Unknown]
  - Contraindicated product administered [Unknown]

NARRATIVE: CASE EVENT DATE: 20220101
